FAERS Safety Report 21729588 (Version 1)
Quarter: 2022Q4

REPORT INFORMATION
  Report Type: Spontaneous
  Country: CA (occurrence: CA)
  Receive Date: 20221214
  Receipt Date: 20221214
  Transmission Date: 20230112
  Serious: Yes (Death)
  Sender: FDA-Public Use
  Company Number: CA-PFIZER INC-202100923503

PATIENT
  Age: 59 Year
  Sex: Female

DRUGS (1)
  1. INLYTA [Suspect]
     Active Substance: AXITINIB
     Indication: Adenoid cystic carcinoma
     Dosage: 5 MG, 2X/DAY
     Route: 048
     Dates: start: 20210714

REACTIONS (2)
  - Death [Fatal]
  - Off label use [Unknown]
